FAERS Safety Report 4336468-9 (Version None)
Quarter: 2004Q2

REPORT INFORMATION
  Report Type: 
  Country: None (occurrence: None)
  Receive Date: 20040407
  Receipt Date: 20040323
  Transmission Date: 20050107
  Serious: Yes (Death)
  Sender: FDA-Public Use
  Company Number: USA-2004-0014296

PATIENT

DRUGS (1)
  1. OXYCODONE HCL [Suspect]

REACTIONS (3)
  - ARTERIOSCLEROSIS [None]
  - DRUG TOXICITY [None]
  - HYPERTENSION [None]
